FAERS Safety Report 16764444 (Version 2)
Quarter: 2019Q4

REPORT INFORMATION
  Report Type: Report from Study
  Country: US (occurrence: US)
  Receive Date: 20190902
  Receipt Date: 20191004
  Transmission Date: 20200122
  Serious: No
  Sender: FDA-Public Use
  Company Number: US-009507513-1908USA011601

PATIENT
  Age: 27 Year
  Sex: Female
  Weight: 116.55 kg

DRUGS (1)
  1. IMPLANON [Suspect]
     Active Substance: ETONOGESTREL
     Indication: MENORRHAGIA
     Dosage: 1 IMPLANT FOR 3 YEARS
     Route: 059
     Dates: start: 20190809, end: 20190816

REACTIONS (6)
  - Implant site swelling [Recovered/Resolved]
  - Medical device discomfort [Recovered/Resolved]
  - Implant site infection [Recovered/Resolved]
  - Product use in unapproved indication [Unknown]
  - Implant site erythema [Recovered/Resolved]
  - Implant site discharge [Recovered/Resolved]

NARRATIVE: CASE EVENT DATE: 20190809
